FAERS Safety Report 10356641 (Version 1)
Quarter: 2014Q3

REPORT INFORMATION
  Report Type: Spontaneous
  Country: US (occurrence: None)
  Receive Date: 20140730
  Receipt Date: 20140730
  Transmission Date: 20150326
  Serious: No
  Sender: FDA-Public Use
  Company Number: None

PATIENT
  Age: 26 Year
  Sex: Female
  Weight: 56.2 kg

DRUGS (1)
  1. TAMOXIFEN [Suspect]
     Active Substance: TAMOXIFEN

REACTIONS (5)
  - Abdominal pain [None]
  - Mood altered [None]
  - Myalgia [None]
  - Pregnancy [None]
  - Treatment noncompliance [None]

NARRATIVE: CASE EVENT DATE: 20140707
